FAERS Safety Report 9504839 (Version 1)
Quarter: 2013Q3

REPORT INFORMATION
  Report Type: Report from Study
  Country: US (occurrence: US)
  Receive Date: 20130906
  Receipt Date: 20130906
  Transmission Date: 20140515
  Serious: Yes (Other)
  Sender: FDA-Public Use
  Company Number: US-ABBOTT-13P-163-1139825-00

PATIENT
  Sex: Male

DRUGS (3)
  1. HUMIRA [Suspect]
     Indication: CROHN^S DISEASE
     Dates: start: 2007
  2. FLONASE [Concomitant]
     Indication: HYPERSENSITIVITY
     Dosage: DAILY
  3. CLARITIN D 12 HOUR [Concomitant]
     Indication: HYPERSENSITIVITY

REACTIONS (5)
  - Intestinal resection [Recovered/Resolved]
  - Anal abscess [Unknown]
  - Incorrect product storage [Unknown]
  - Flatulence [Recovered/Resolved]
  - Diarrhoea [Recovered/Resolved]
